FAERS Safety Report 12839608 (Version 1)
Quarter: 2016Q4

REPORT INFORMATION
  Report Type: Spontaneous
  Country: US (occurrence: US)
  Receive Date: 20161012
  Receipt Date: 20161012
  Transmission Date: 20170207
  Serious: Yes (Hospitalization)
  Sender: FDA-Public Use
  Company Number: US-AMNEAL PHARMACEUTICALS-2015AMN00185

PATIENT
  Age: 57 Year
  Sex: Female
  Weight: 74.51 kg

DRUGS (2)
  1. PF-06647020 [Concomitant]
     Active Substance: INVESTIGATIONAL PRODUCT
     Dosage: 2.8 MG/KG, EVERY 3 WEEKS
     Dates: start: 20150902
  2. HYDROCODONE AND ACETAMINOPHEN [Suspect]
     Active Substance: ACETAMINOPHEN\HYDROCODONE
     Indication: TUMOUR PAIN
     Dosage: UNK, UP TO 6X/DAY
     Route: 048
     Dates: start: 20150904, end: 20150919

REACTIONS (1)
  - Constipation [Recovered/Resolved]

NARRATIVE: CASE EVENT DATE: 20150918
